FAERS Safety Report 7200097-X (Version None)
Quarter: 2010Q4

REPORT INFORMATION
  Report Type: 
  Country: None (occurrence: None)
  Receive Date: 20101228
  Receipt Date: 20101220
  Transmission Date: 20110411
  Serious: Yes (Other)
  Sender: FDA-Public Use
  Company Number: US-JNJFOC-20101207907

PATIENT
  Sex: Female
  Weight: 45.36 kg

DRUGS (6)
  1. DURAGESIC-50 [Suspect]
     Indication: INTERVERTEBRAL DISC PROTRUSION
     Route: 062
  2. FENTANYL-100 [Suspect]
     Indication: INTERVERTEBRAL DISC PROTRUSION
     Dosage: 100 UG/HR + 25 UG/HR, NDC #: 0781-7241-55 FOR 25 UG/HR AND NDC #: 0781-7244-55 FOR 100 UG/HR PATCH
     Route: 062
  3. FENTANYL CITRATE [Suspect]
     Indication: INTERVERTEBRAL DISC PROTRUSION
     Route: 062
  4. FENTANYL-100 [Suspect]
     Indication: INTERVERTEBRAL DISC PROTRUSION
     Route: 062
  5. BENADRYL [Concomitant]
     Indication: HYPERSENSITIVITY
     Dosage: 1 TO 2 AS NEEDED
     Route: 048
  6. MULTIPLE MEDICATIONS [Concomitant]

REACTIONS (9)
  - BACK PAIN [None]
  - BODY HEIGHT DECREASED [None]
  - HYPERHIDROSIS [None]
  - MALAISE [None]
  - MUSCLE SPASMS [None]
  - NAUSEA [None]
  - TREATMENT NONCOMPLIANCE [None]
  - VOMITING [None]
  - WRONG TECHNIQUE IN DRUG USAGE PROCESS [None]
